FAERS Safety Report 16982634 (Version 1)
Quarter: 2019Q4

REPORT INFORMATION
  Report Type: Spontaneous
  Country: FR (occurrence: FR)
  Receive Date: 20191101
  Receipt Date: 20191101
  Transmission Date: 20200122
  Serious: Yes (Hospitalization)
  Sender: FDA-Public Use
  Company Number: FR-TEVA-2019-FR-1129940

PATIENT
  Age: 21 Year
  Sex: Female

DRUGS (3)
  1. DOLIPRANE [Concomitant]
     Active Substance: ACETAMINOPHEN
     Indication: NECK PAIN
     Dosage: 1000 MG
     Route: 048
     Dates: start: 20190927
  2. MIOREL [Concomitant]
     Indication: NECK PAIN
     Dosage: 1 TABLET IN THE MORNING, 1 TABLET IN THE EVENING, 16 MG
     Route: 048
     Dates: start: 20190927, end: 20190929
  3. KETOPROFEN. [Suspect]
     Active Substance: KETOPROFEN
     Indication: NECK PAIN
     Dosage: 100 MG LP 1 MORNING, 1 EVENING, 200 MG
     Route: 048
     Dates: start: 20190927, end: 20190929

REACTIONS (2)
  - Abdominal pain upper [Recovered/Resolved]
  - Acute kidney injury [Recovering/Resolving]

NARRATIVE: CASE EVENT DATE: 20190930
